FAERS Safety Report 19745894 (Version 1)
Quarter: 2021Q3

REPORT INFORMATION
  Report Type: Spontaneous
  Country: US (occurrence: US)
  Receive Date: 20210824
  Receipt Date: 20210824
  Transmission Date: 20211014
  Serious: Yes (Other)
  Sender: FDA-Public Use
  Company Number: None

PATIENT
  Age: 49 Year
  Sex: Female
  Weight: 60.75 kg

DRUGS (4)
  1. TAMSULOSIN 0.4MG CAPSULES [Suspect]
     Active Substance: TAMSULOSIN
     Indication: NEPHROLITHIASIS
     Dosage: ?          QUANTITY:1 CAPSULE(S);?
     Route: 048
     Dates: start: 20210823
  2. VITAMIN D [Concomitant]
     Active Substance: VITAMIN D NOS
  3. ZINC. [Concomitant]
     Active Substance: ZINC
  4. MULTIVITAMIN [Concomitant]
     Active Substance: VITAMINS

REACTIONS (5)
  - Palpitations [None]
  - Nervousness [None]
  - Pharyngeal swelling [None]
  - Vision blurred [None]
  - Nasal congestion [None]

NARRATIVE: CASE EVENT DATE: 20210824
